FAERS Safety Report 21704723 (Version 2)
Quarter: 2022Q4

REPORT INFORMATION
  Report Type: Report from Study
  Country: BR (occurrence: BR)
  Receive Date: 20221209
  Receipt Date: 20221218
  Transmission Date: 20230113
  Serious: Yes (Other)
  Sender: FDA-Public Use
  Company Number: BR-JNJFOC-20221116541

PATIENT
  Age: 17 Year
  Sex: Male
  Weight: 41 kg

DRUGS (2)
  1. REMICADE [Suspect]
     Active Substance: INFLIXIMAB
     Indication: Colitis ulcerative
     Route: 041
     Dates: start: 20220727
  2. REMICADE [Suspect]
     Active Substance: INFLIXIMAB
     Indication: Crohn^s disease
     Dosage: 3 VIALS EVERY 4 WEEKS
     Route: 041

REACTIONS (5)
  - Drug-induced liver injury [Unknown]
  - Weight decreased [Unknown]
  - Frequent bowel movements [Unknown]
  - Drug level below therapeutic [Unknown]
  - Off label use [Unknown]
